FAERS Safety Report 7298186-7 (Version None)
Quarter: 2011Q1

REPORT INFORMATION
  Report Type: 
  Country: None (occurrence: None)
  Receive Date: 20110217
  Receipt Date: 20110204
  Transmission Date: 20110831
  Serious: Yes (Hospitalization)
  Sender: FDA-Public Use
  Company Number: PL-JNJFOC-20110106285

PATIENT
  Sex: Female
  Weight: 73 kg

DRUGS (11)
  1. METHYLPREDNISOLONE [Concomitant]
     Route: 048
  2. NORDETTE-28 [Concomitant]
     Route: 048
  3. METHOTREXATE [Concomitant]
     Route: 048
  4. LYMECYCLINE [Concomitant]
     Route: 048
  5. METHOTREXATE [Suspect]
     Route: 048
  6. GOLIMUMAB [Suspect]
     Route: 058
  7. PLACEBO [Suspect]
     Indication: RHEUMATOID ARTHRITIS
     Route: 058
  8. FOLIC ACID [Concomitant]
     Route: 048
  9. GOLIMUMAB [Suspect]
     Indication: RHEUMATOID ARTHRITIS
     Route: 058
  10. METHOTREXATE [Suspect]
     Indication: RHEUMATOID ARTHRITIS
     Route: 048
  11. AMOKSIKLAV [Concomitant]
     Route: 048

REACTIONS (1)
  - PNEUMONIA [None]
